FAERS Safety Report 16772358 (Version 2)
Quarter: 2019Q3

REPORT INFORMATION
  Report Type: Report from Study
  Country: KR (occurrence: KR)
  Receive Date: 20190904
  Receipt Date: 20190911
  Transmission Date: 20191005
  Serious: Yes (Hospitalization)
  Sender: FDA-Public Use
  Company Number: KR-ACTELION-A-CH2019-195041

PATIENT
  Age: 77 Year
  Sex: Male
  Weight: 65.2 kg

DRUGS (6)
  1. PIRESPA [Concomitant]
     Active Substance: PIRFENIDONE
     Dosage: 1200 MG, QD
     Route: 048
     Dates: start: 20180711, end: 20190602
  2. PAHTENSION [Concomitant]
     Active Substance: SILDENAFIL CITRATE
     Dosage: 60 MG, QD
     Route: 048
     Dates: start: 20190701
  3. OPSUMIT [Suspect]
     Active Substance: MACITENTAN
     Indication: PULMONARY ARTERIAL HYPERTENSION
     Dosage: 10 MG, QD
     Route: 048
     Dates: start: 20190111, end: 20190701
  4. RABE [Concomitant]
     Dosage: 40 MG, QD
     Route: 048
     Dates: start: 20181219
  5. LEBROCOL [Concomitant]
     Dosage: 120 MG, QD
     Route: 048
     Dates: start: 20190111, end: 20190121
  6. PEMIROLAST POTASSIUM [Concomitant]
     Active Substance: PEMIROLAST POTASSIUM
     Dosage: 10 MG, QD
     Route: 048
     Dates: start: 20181219, end: 20190324

REACTIONS (12)
  - Aspartate aminotransferase [Recovered/Resolved]
  - Prothrombin time abnormal [Recovered/Resolved]
  - Dyspnoea [Not Recovered/Not Resolved]
  - Alanine aminotransferase increased [Recovered/Resolved]
  - Liver disorder [Recovered/Resolved]
  - Blood bilirubin increased [Recovered/Resolved]
  - Gamma-glutamyltransferase increased [Recovered/Resolved]
  - White blood cell count increased [Recovered/Resolved]
  - Pulmonary oedema [Recovered/Resolved]
  - Hepatic congestion [Recovered/Resolved]
  - Pneumonia [Recovered/Resolved]
  - Protein urine present [Unknown]

NARRATIVE: CASE EVENT DATE: 20190627
